FAERS Safety Report 5580719-X (Version None)
Quarter: 2007Q4

REPORT INFORMATION
  Report Type: 
  Country: None (occurrence: None)
  Receive Date: 20071130
  Receipt Date: 20070714
  Transmission Date: 20080405
  Serious: No
  Sender: FDA-Public Use
  Company Number: US200707003654

PATIENT
  Age: 73 Year
  Sex: Female

DRUGS (9)
  1. BYETTA [Suspect]
     Indication: TYPE 2 DIABETES MELLITUS
     Dosage: 10 UG, 2/D, SUBCUTANEOUS
     Route: 058
     Dates: start: 20070709
  2. METFORMIN HCL [Concomitant]
  3. AVANDIA [Concomitant]
  4. LANTUS [Concomitant]
  5. QUINAPRIL HCL [Concomitant]
  6. NORVASC [Concomitant]
  7. LIPITOR [Concomitant]
  8. NAPROXEN [Concomitant]
  9. POTASSIUM (POTASSIUM) [Concomitant]

REACTIONS (1)
  - BLOOD GLUCOSE INCREASED [None]
